FAERS Safety Report 25257634 (Version 1)
Quarter: 2025Q2

REPORT INFORMATION
  Report Type: Spontaneous
  Country: US (occurrence: US)
  Receive Date: 20250430
  Receipt Date: 20250430
  Transmission Date: 20250716
  Serious: Yes (Other)
  Sender: MERCK SHARP & DOHME LLC
  Company Number: US-009507513-2279667

PATIENT
  Age: 52 Year
  Sex: Female

DRUGS (2)
  1. SUGAMMADEX [Suspect]
     Active Substance: SUGAMMADEX
     Indication: Product used for unknown indication
  2. AYVAKIT [Concomitant]
     Active Substance: AVAPRITINIB
     Indication: Systemic mastocytosis
     Dosage: ONGOING THERAPY?ROUTE OF ADMINISTRATION: UNKNOWN
     Dates: start: 20250103

REACTIONS (1)
  - Drug hypersensitivity [Unknown]

NARRATIVE: CASE EVENT DATE: 20250101
